FAERS Safety Report 21399831 (Version 1)
Quarter: 2022Q4

REPORT INFORMATION
  Report Type: Spontaneous
  Country: US (occurrence: US)
  Receive Date: 20221001
  Receipt Date: 20221001
  Transmission Date: 20230112
  Serious: No
  Sender: FDA-Public Use
  Company Number: US-TEVA-2022-US-2074975

PATIENT
  Age: 81 Year
  Sex: Male

DRUGS (1)
  1. MODAFINIL [Suspect]
     Active Substance: MODAFINIL
     Indication: Lethargy
     Route: 065

REACTIONS (3)
  - Fatigue [Unknown]
  - Hypersomnia [Unknown]
  - Tremor [Unknown]
